FAERS Safety Report 6328350-2 (Version None)
Quarter: 2009Q3

REPORT INFORMATION
  Report Type: 
  Country: None (occurrence: None)
  Receive Date: 20090825
  Receipt Date: 20090511
  Transmission Date: 20100115
  Serious: No
  Sender: FDA-Public Use
  Company Number: US-ABBOTT-09P-163-0572727-00

PATIENT
  Age: 69 Year
  Sex: Female

DRUGS (1)
  1. SYNTHROID [Suspect]
     Indication: DRUG USE FOR UNKNOWN INDICATION
     Dosage: DRUG FROM CANADA

REACTIONS (3)
  - ABDOMINAL DISTENSION [None]
  - FEELING ABNORMAL [None]
  - FLATULENCE [None]
